FAERS Safety Report 21391808 (Version 2)
Quarter: 2022Q4

REPORT INFORMATION
  Report Type: Spontaneous
  Country: CO (occurrence: CO)
  Receive Date: 20220929
  Receipt Date: 20221012
  Transmission Date: 20230112
  Serious: Yes (Hospitalization, Other)
  Sender: FDA-Public Use
  Company Number: CO-VERTEX PHARMACEUTICALS-2022-014399

PATIENT
  Age: 23 Year
  Sex: Male
  Weight: 42 kg

DRUGS (5)
  1. TRIKAFTA [Suspect]
     Active Substance: ELEXACAFTOR\IVACAFTOR\TEZACAFTOR
     Indication: Cystic fibrosis
     Dosage: UNK, QD
     Route: 048
     Dates: start: 20220811
  2. FLUTICASONE [Concomitant]
     Active Substance: FLUTICASONE
     Indication: Cystic fibrosis
     Dosage: 50 + 200 MCG
  3. URSODIOL [Concomitant]
     Active Substance: URSODIOL
     Indication: Nephrolithiasis
     Dosage: 300 MILLIGRAM
     Route: 048
  4. DORNASE ALFA [Concomitant]
     Active Substance: DORNASE ALFA
     Indication: Cystic fibrosis
     Dosage: 2.5 MILLIGRAM
     Route: 048
  5. ALBUTEROL [Concomitant]
     Active Substance: ALBUTEROL
     Indication: Cystic fibrosis
     Dosage: 100 MICROGRAM

REACTIONS (4)
  - Pyrexia [Recovered/Resolved]
  - Haemoptysis [Recovering/Resolving]
  - Testicular mass [Recovering/Resolving]
  - Testicular pain [Recovering/Resolving]

NARRATIVE: CASE EVENT DATE: 20220920
